FAERS Safety Report 17656387 (Version 1)
Quarter: 2020Q2

REPORT INFORMATION
  Report Type: Spontaneous
  Country: US (occurrence: US)
  Receive Date: 20200410
  Receipt Date: 20200410
  Transmission Date: 20200713
  Serious: No
  Sender: FDA-Public Use
  Company Number: US-JNJFOC-20200408524

PATIENT
  Age: 71 Year
  Sex: Female
  Weight: 53.57 kg

DRUGS (2)
  1. REMICADE [Suspect]
     Active Substance: INFLIXIMAB
     Indication: RETINAL VASCULITIS
     Route: 042
     Dates: start: 201311
  2. REMICADE [Suspect]
     Active Substance: INFLIXIMAB
     Route: 042

REACTIONS (5)
  - Stress [Unknown]
  - Sinusitis [Not Recovered/Not Resolved]
  - Product use in unapproved indication [Unknown]
  - Bacterial infection [Recovered/Resolved]
  - Off label use [Unknown]

NARRATIVE: CASE EVENT DATE: 201311
